FAERS Safety Report 5758244-2 (Version None)
Quarter: 2008Q2

REPORT INFORMATION
  Report Type: 
  Country: None (occurrence: None)
  Receive Date: 20080604
  Receipt Date: 20080523
  Transmission Date: 20081010
  Serious: Yes (Hospitalization)
  Sender: FDA-Public Use
  Company Number: SE-AVENTIS-200815079GDDC

PATIENT
  Age: 68 Year
  Sex: Male
  Weight: 104.2 kg

DRUGS (1)
  1. GLIMEPIRIDE [Suspect]
     Indication: DIABETES MELLITUS INADEQUATE CONTROL
     Dosage: DOSE: TITRATED DOSE BETWEEN 1 MG AND 6 MG
     Route: 048
     Dates: start: 20080320

REACTIONS (1)
  - NYSTAGMUS [None]
